FAERS Safety Report 22831275 (Version 3)
Quarter: 2024Q1

REPORT INFORMATION
  Report Type: Report from Study
  Country: CA (occurrence: CA)
  Receive Date: 20230817
  Receipt Date: 20240125
  Transmission Date: 20240410
  Serious: Yes (Hospitalization, Other)
  Sender: FDA-Public Use
  Company Number: CA-JNJFOC-20230528885

PATIENT
  Age: 23 Year
  Sex: Male
  Weight: 155 kg

DRUGS (2)
  1. REMICADE [Suspect]
     Active Substance: INFLIXIMAB
     Indication: Crohn^s disease
     Dosage: EXPIRY DATE: 31-AUG-2025?THERAPY START DATE: 16-FEB-2023?THERAPY START DATE WAS ALSO GIVEN AS 24-FEB
     Route: 041
     Dates: start: 20230210
  2. REMICADE [Suspect]
     Active Substance: INFLIXIMAB
     Dosage: PATIENT INFUSED ON 11-AUG-2023,?EXPIRY DATE: 30-SEP-2025?EXPIRY DATE: 31-MAR-2026
     Route: 041
     Dates: start: 2023

REACTIONS (11)
  - Gait inability [Recovered/Resolved]
  - Abnormal faeces [Recovered/Resolved]
  - Joint swelling [Recovered/Resolved]
  - Crohn^s disease [Not Recovered/Not Resolved]
  - Drug ineffective [Unknown]
  - Anorectal disorder [Unknown]
  - Decreased appetite [Unknown]
  - Pregnancy of partner [Not Recovered/Not Resolved]
  - Arthralgia [Recovered/Resolved]
  - Back pain [Unknown]
  - Off label use [Unknown]

NARRATIVE: CASE EVENT DATE: 20230101
